FAERS Safety Report 5942914-7 (Version None)
Quarter: 2008Q4

REPORT INFORMATION
  Report Type: 
  Country: None (occurrence: None)
  Receive Date: 20081106
  Receipt Date: 20081029
  Transmission Date: 20090506
  Serious: Yes (Death)
  Sender: FDA-Public Use
  Company Number: KR-BRISTOL-MYERS SQUIBB COMPANY-14392252

PATIENT

DRUGS (1)
  1. ENTECAVIR [Suspect]

REACTIONS (1)
  - HEPATIC FAILURE [None]
